FAERS Safety Report 5474999-9 (Version None)
Quarter: 2007Q4

REPORT INFORMATION
  Report Type: 
  Country: None (occurrence: None)
  Receive Date: 20071002
  Receipt Date: 20070920
  Transmission Date: 20080405
  Serious: Yes (Life-Threatening, Hospitalization)
  Sender: FDA-Public Use
  Company Number: PHHO2007US13355

PATIENT
  Sex: Female

DRUGS (1)
  1. GLEEVEC [Suspect]
     Indication: CHRONIC MYELOID LEUKAEMIA
     Route: 064

REACTIONS (40)
  - ABDOMINAL DISTENSION [None]
  - ANAEMIA [None]
  - AORTIC THROMBOSIS [None]
  - ASCITES [None]
  - ATELECTASIS [None]
  - ATRIAL SEPTAL DEFECT [None]
  - BLOOD POTASSIUM DECREASED [None]
  - BONE MARROW FAILURE [None]
  - CARNITINE DECREASED [None]
  - COLLAPSE OF LUNG [None]
  - DISSEMINATED INTRAVASCULAR COAGULATION [None]
  - DRUG EXPOSURE DURING PREGNANCY [None]
  - ELECTROLYTE IMBALANCE [None]
  - FOETAL GROWTH RETARDATION [None]
  - GASTRIC HAEMORRHAGE [None]
  - GENERALISED OEDEMA [None]
  - HEPATIC FUNCTION ABNORMAL [None]
  - HEPATOMEGALY [None]
  - HYPERBILIRUBINAEMIA [None]
  - HYPERCALCAEMIA [None]
  - HYPOGLYCAEMIA [None]
  - INTUBATION [None]
  - METABOLIC ACIDOSIS [None]
  - NEUTROPENIA [None]
  - PLACENTAL DISORDER [None]
  - PLACENTAL INSUFFICIENCY [None]
  - PLATELET COUNT ABNORMAL [None]
  - PREMATURE BABY [None]
  - PULMONARY HAEMORRHAGE [None]
  - PULMONARY OEDEMA NEONATAL [None]
  - PULMONARY THROMBOSIS [None]
  - RESPIRATORY DISTRESS [None]
  - SEPSIS [None]
  - SPLENOMEGALY [None]
  - STAPHYLOCOCCAL INFECTION [None]
  - SURGERY [None]
  - THROMBOCYTOPENIA [None]
  - THROMBOSIS [None]
  - THYROID DISORDER [None]
  - URINARY TRACT INFECTION PSEUDOMONAL [None]
